FAERS Safety Report 23810984 (Version 2)
Quarter: 2024Q2

REPORT INFORMATION
  Report Type: Spontaneous
  Country: PL (occurrence: PL)
  Receive Date: 20240502
  Receipt Date: 20240607
  Transmission Date: 20240716
  Serious: Yes (Other)
  Sender: FDA-Public Use
  Company Number: PL-ABBVIE-5740214

PATIENT
  Age: 72 Year
  Sex: Female

DRUGS (10)
  1. VENETOCLAX [Suspect]
     Active Substance: VENETOCLAX
     Indication: Acute myeloid leukaemia
     Route: 048
     Dates: start: 20230211, end: 20230211
  2. VENETOCLAX [Suspect]
     Active Substance: VENETOCLAX
     Indication: Acute myeloid leukaemia
     Dosage: LAST ADMIN DATE: 2023
     Route: 048
     Dates: start: 20230213
  3. VENETOCLAX [Suspect]
     Active Substance: VENETOCLAX
     Indication: Acute myeloid leukaemia
     Route: 048
     Dates: start: 2023
  4. VENETOCLAX [Suspect]
     Active Substance: VENETOCLAX
     Indication: Acute myeloid leukaemia
     Dosage: LAST ADMIN DATE: 2023
     Route: 048
     Dates: start: 2023
  5. VENETOCLAX [Suspect]
     Active Substance: VENETOCLAX
     Indication: Acute myeloid leukaemia
     Route: 048
     Dates: start: 20230212, end: 20230212
  6. ALLOPURINOL [Concomitant]
     Active Substance: ALLOPURINOL
     Indication: Product used for unknown indication
  7. ALLOPURINOL [Concomitant]
     Active Substance: ALLOPURINOL
     Indication: Product used for unknown indication
  8. AZACITIDINE [Concomitant]
     Active Substance: AZACITIDINE
     Indication: Acute myeloid leukaemia
     Dates: start: 20230211
  9. ROSUVASTATIN [Concomitant]
     Active Substance: ROSUVASTATIN
     Indication: Product used for unknown indication
  10. HYDROXYUREA [Concomitant]
     Active Substance: HYDROXYUREA
     Indication: Cytoreductive surgery
     Dosage: VARIABLE DOSE

REACTIONS (7)
  - Neutropenia [Recovered/Resolved]
  - Agranulocytosis [Recovering/Resolving]
  - Diverticulitis [Recovered/Resolved]
  - Acute myeloid leukaemia [Recovering/Resolving]
  - Pneumonia fungal [Recovered/Resolved]
  - Influenza [Recovered/Resolved]
  - Bone marrow disorder [Recovering/Resolving]

NARRATIVE: CASE EVENT DATE: 20230101
